FAERS Safety Report 15741360 (Version 1)
Quarter: 2018Q4

REPORT INFORMATION
  Report Type: Report from Study
  Country: FR (occurrence: FR)
  Receive Date: 20181219
  Receipt Date: 20181219
  Transmission Date: 20190205
  Serious: Yes (Death, Hospitalization, Other)
  Sender: FDA-Public Use
  Company Number: FR-JAZZ-2018-FR-007436

PATIENT

DRUGS (1)
  1. DEFITELIO [Suspect]
     Active Substance: DEFIBROTIDE SODIUM
     Indication: VENOOCCLUSIVE DISEASE
     Dosage: 25 MG/KG, QD
     Route: 042
     Dates: start: 20170312, end: 201703

REACTIONS (4)
  - Multiple organ dysfunction syndrome [Fatal]
  - Sepsis [Unknown]
  - Shock [Fatal]
  - Escherichia infection [Unknown]

NARRATIVE: CASE EVENT DATE: 2017
